FAERS Safety Report 5925145-6 (Version None)
Quarter: 2008Q4

REPORT INFORMATION
  Report Type: 
  Country: None (occurrence: None)
  Receive Date: 20081021
  Receipt Date: 20081014
  Transmission Date: 20090506
  Serious: Yes (Other)
  Sender: FDA-Public Use
  Company Number: US-ROCHE-591351

PATIENT
  Sex: Male
  Weight: 62.1 kg

DRUGS (2)
  1. CAPECITABINE [Suspect]
     Indication: HEPATIC NEOPLASM MALIGNANT
     Dosage: FREQUENCY: 2 WEEKS ON, 1 WEEK OFF
     Route: 065
     Dates: start: 20080729, end: 20080914
  2. CHEMOTHERAPY [Concomitant]
     Route: 042

REACTIONS (1)
  - DISEASE PROGRESSION [None]
